FAERS Safety Report 14392355 (Version 1)
Quarter: 2018Q1

REPORT INFORMATION
  Report Type: Spontaneous
  Country: JP (occurrence: JP)
  Receive Date: 20180116
  Receipt Date: 20180116
  Transmission Date: 20180509
  Serious: Yes (Hospitalization, Other)
  Sender: FDA-Public Use
  Company Number: JP-SA-2017SA215154

PATIENT
  Age: 79 Year
  Sex: Female

DRUGS (2)
  1. ELPLAT [Suspect]
     Active Substance: OXALIPLATIN
     Indication: GASTRIC CANCER
     Route: 041
  2. TS-1 [Concomitant]
     Active Substance: GIMERACIL\OTERACIL\TEGAFUR
     Indication: GASTRIC CANCER
     Route: 065

REACTIONS (4)
  - Thrombocytopenia [Unknown]
  - Abdominal abscess [Recovering/Resolving]
  - Neuropathy peripheral [Unknown]
  - Decreased appetite [Unknown]
